FAERS Safety Report 4580006-2 (Version None)
Quarter: 2005Q1

REPORT INFORMATION
  Report Type: 
  Country: None (occurrence: None)
  Receive Date: 20050210
  Receipt Date: 20050208
  Transmission Date: 20050727
  Serious: Yes (Hospitalization)
  Sender: FDA-Public Use
  Company Number: 2004PL000074

PATIENT
  Age: 20 Year
  Sex: Male

DRUGS (1)
  1. MERCAPTOPURINE [Suspect]
     Indication: COLITIS ULCERATIVE
     Dosage: 125 MG; DAILY; ORAL
     Route: 048
     Dates: start: 20040601, end: 20041213

REACTIONS (3)
  - LUNG INFECTION [None]
  - PANCYTOPENIA [None]
  - PHARYNGITIS [None]
